FAERS Safety Report 7927945-X (Version None)
Quarter: 2011Q4

REPORT INFORMATION
  Report Type: 
  Country: None (occurrence: None)
  Receive Date: 20111117
  Receipt Date: 20111117
  Transmission Date: 20120403
  Serious: No
  Sender: FDA-Public Use
  Company Number: None

PATIENT
  Age: 35 Year
  Sex: Male
  Weight: 55.7924 kg

DRUGS (2)
  1. LORAZEPAM [Suspect]
     Indication: IMPULSE-CONTROL DISORDER
     Dosage: LORAZEPAM 1 MG P.O. TID PRN
     Route: 048
     Dates: start: 20110101, end: 20111001
  2. LORAZEPAM [Suspect]
     Indication: SEVERE MENTAL RETARDATION
     Dosage: LORAZEPAM 1 MG P.O. TID PRN
     Route: 048
     Dates: start: 20110101, end: 20111001

REACTIONS (2)
  - DRUG EFFECT DECREASED [None]
  - PRODUCT SUBSTITUTION ISSUE [None]
